FAERS Safety Report 13778478 (Version 1)
Quarter: 2017Q3

REPORT INFORMATION
  Report Type: Spontaneous
  Country: GB (occurrence: GB)
  Receive Date: 20170721
  Receipt Date: 20170721
  Transmission Date: 20171127
  Serious: Yes (Hospitalization)
  Sender: FDA-Public Use
  Company Number: GB-ACCORD-055945

PATIENT
  Age: 35 Year
  Sex: Female

DRUGS (10)
  1. LEMSIP [Concomitant]
     Active Substance: ACETAMINOPHEN\ASCORBIC ACID\PHENYLEPHRINE HYDROCHLORIDE\SODIUM CITRATE
  2. TRAMADOL. [Concomitant]
     Active Substance: TRAMADOL
  3. INDAPAMIDE/INDAPAMIDE HEMIHYDRATE [Concomitant]
  4. CODEINE PHOSPHATE/PARACETAMOL [Concomitant]
  5. IBUPROFEN. [Concomitant]
     Active Substance: IBUPROFEN
  6. PARACETAMOL [Concomitant]
     Active Substance: ACETAMINOPHEN
  7. RAMIPRIL. [Concomitant]
     Active Substance: RAMIPRIL
  8. SERTRALINE [Concomitant]
     Active Substance: SERTRALINE HYDROCHLORIDE
  9. ANASTROZOLE. [Suspect]
     Active Substance: ANASTROZOLE
     Indication: BREAST CANCER
     Route: 048
     Dates: start: 20170228, end: 20170627
  10. BISOPROLOL [Concomitant]
     Active Substance: BISOPROLOL

REACTIONS (5)
  - Rash erythematous [Recovering/Resolving]
  - Pruritus [Unknown]
  - Pyrexia [Unknown]
  - Swelling [Unknown]
  - Burning sensation [Unknown]

NARRATIVE: CASE EVENT DATE: 201706
